FAERS Safety Report 18237962 (Version 1)
Quarter: 2020Q3

REPORT INFORMATION
  Report Type: Spontaneous
  Country: US (occurrence: US)
  Receive Date: 20200907
  Receipt Date: 20200907
  Transmission Date: 20201103
  Serious: No
  Sender: FDA-Public Use
  Company Number: US-LUPIN PHARMACEUTICALS INC.-2019-08448

PATIENT
  Sex: Male

DRUGS (2)
  1. AMLODIPINE AND BENAZEPRIL HYDROCHLORIDE CAPSULES USP, 10 MG/40 MG [Suspect]
     Active Substance: AMLODIPINE BESYLATE\BENAZEPRIL HYDROCHLORIDE
     Dosage: UNK
     Route: 065
     Dates: start: 2019
  2. AMLODIPINE AND BENAZEPRIL HYDROCHLORIDE CAPSULES USP, 10 MG/40 MG [Suspect]
     Active Substance: AMLODIPINE BESYLATE\BENAZEPRIL HYDROCHLORIDE
     Indication: PRODUCT USED FOR UNKNOWN INDICATION
     Dosage: UNK
     Route: 065

REACTIONS (3)
  - Headache [Unknown]
  - Product formulation issue [Unknown]
  - Hypertension [Unknown]

NARRATIVE: CASE EVENT DATE: 2019
